FAERS Safety Report 13748012 (Version 1)
Quarter: 2017Q3

REPORT INFORMATION
  Report Type: Spontaneous
  Country: DE (occurrence: DE)
  Receive Date: 20170713
  Receipt Date: 20170713
  Transmission Date: 20171127
  Serious: Yes (Other)
  Sender: FDA-Public Use
  Company Number: DE-TORRENT-00006681

PATIENT
  Age: 30 Year
  Sex: Female
  Weight: 87 kg

DRUGS (8)
  1. GRIPPEIMPFSTOFF [Concomitant]
     Active Substance: INFLUENZA VIRUS VACCINE
  2. HUMALOG [Concomitant]
     Active Substance: INSULIN LISPRO
  3. HUMALOG MIX [Concomitant]
     Active Substance: INSULIN LISPRO
  4. OLANZAPINE. [Suspect]
     Active Substance: OLANZAPINE
  5. FOLIO FORTE [Concomitant]
     Active Substance: FOLIC ACID\VITAMINS
  6. L-THYROX 75 [Concomitant]
  7. LANTUS [Concomitant]
     Active Substance: INSULIN GLARGINE
  8. VENLAFAXINE [Suspect]
     Active Substance: VENLAFAXINE HYDROCHLORIDE

REACTIONS (2)
  - Exposure during pregnancy [Unknown]
  - Gestational diabetes [Recovered/Resolved]
